FAERS Safety Report 8896268 (Version 1)
Quarter: 2012Q4

REPORT INFORMATION
  Report Type: Spontaneous
  Country: US (occurrence: None)
  Receive Date: 20121106
  Receipt Date: 20121106
  Transmission Date: 20130627
  Serious: No
  Sender: FDA-Public Use
  Company Number: None

PATIENT
  Age: 50 Year
  Sex: Female
  Weight: 52.16 kg

DRUGS (1)
  1. PRISTIQ [Suspect]
     Indication: ANXIETY
     Dosage: 50 mg 1 daily po
     Route: 048
     Dates: start: 20120920, end: 20121014

REACTIONS (4)
  - Aggression [None]
  - Dizziness [None]
  - Vertigo [None]
  - Drug withdrawal syndrome [None]
